FAERS Safety Report 8227677-7 (Version None)
Quarter: 2012Q1

REPORT INFORMATION
  Report Type: 
  Country: None (occurrence: None)
  Receive Date: 20120322
  Receipt Date: 20120319
  Transmission Date: 20120608
  Serious: Yes (Other)
  Sender: FDA-Public Use
  Company Number: US-PFIZER INC-2012071703

PATIENT
  Sex: Male

DRUGS (5)
  1. VIOXX [Suspect]
     Dosage: UNK
  2. NEXIUM [Concomitant]
     Dosage: UNK
  3. LIPITOR [Suspect]
     Indication: BLOOD CHOLESTEROL INCREASED
     Dosage: 10 MG, 1X/DAY
     Route: 048
     Dates: start: 19970101
  4. LOPRESSOR [Concomitant]
     Dosage: UNK
  5. ATIVAN [Concomitant]
     Dosage: UNK

REACTIONS (4)
  - CEREBROVASCULAR ACCIDENT [None]
  - BLOOD CHOLESTEROL INCREASED [None]
  - MEMORY IMPAIRMENT [None]
  - JAW DISORDER [None]
